FAERS Safety Report 7014353-1 (Version None)
Quarter: 2010Q3

REPORT INFORMATION
  Report Type: 
  Country: None (occurrence: None)
  Receive Date: 20100922
  Receipt Date: 20100907
  Transmission Date: 20110219
  Serious: Yes (Hospitalization)
  Sender: FDA-Public Use
  Company Number: 2010AM002998

PATIENT
  Age: 70 Year
  Sex: Female
  Weight: 125.6464 kg

DRUGS (5)
  1. SYMLIN [Suspect]
     Indication: TYPE 2 DIABETES MELLITUS
     Dosage: 150 MCG; TID; SC, 30 MCG; TID; SC
     Route: 058
     Dates: start: 20050101, end: 20050101
  2. SYMLIN [Suspect]
     Indication: TYPE 2 DIABETES MELLITUS
     Dosage: 150 MCG; TID; SC, 30 MCG; TID; SC
     Route: 058
     Dates: start: 20050101
  3. NOVOLIN R (CON.) [Concomitant]
  4. LANTUS (CON.) [Concomitant]
  5. PREV MEDS [Concomitant]

REACTIONS (7)
  - BLOOD GLUCOSE DECREASED [None]
  - CONFUSIONAL STATE [None]
  - FALL [None]
  - GAIT DISTURBANCE [None]
  - INAPPROPRIATE SCHEDULE OF DRUG ADMINISTRATION [None]
  - MALAISE [None]
  - WEIGHT INCREASED [None]
